FAERS Safety Report 10723114 (Version 1)
Quarter: 2015Q1

REPORT INFORMATION
  Report Type: Spontaneous
  Country: DE (occurrence: DE)
  Receive Date: 20150120
  Receipt Date: 20150120
  Transmission Date: 20150721
  Serious: Yes (Other)
  Sender: FDA-Public Use
  Company Number: DE-CIPLA LTD.-2015DE00299

PATIENT

DRUGS (1)
  1. ZOLPIDEM TARTARATE [Suspect]
     Active Substance: ZOLPIDEM TARTRATE
     Dosage: 10 MG, UNK

REACTIONS (6)
  - Poisoning [Unknown]
  - Road traffic accident [Unknown]
  - Somnambulism [Unknown]
  - Hypokinesia [Unknown]
  - Malaise [Unknown]
  - Vomiting [Unknown]
